FAERS Safety Report 7898625-4 (Version None)
Quarter: 2011Q4

REPORT INFORMATION
  Report Type: 
  Country: None (occurrence: None)
  Receive Date: 20111107
  Receipt Date: 20111107
  Transmission Date: 20120403
  Serious: Yes (Hospitalization, Other)
  Sender: FDA-Public Use
  Company Number: None

PATIENT
  Age: 62 Year
  Sex: Male
  Weight: 95.254 kg

DRUGS (2)
  1. LORATADINE [Suspect]
     Indication: MULTIPLE ALLERGIES
     Dosage: 1
     Route: 048
     Dates: start: 20000101, end: 20111001
  2. CHLORPHENIRAMINE MALEATE [Concomitant]
     Indication: OROPHARYNGEAL PAIN
     Dosage: 4 TO 6
     Route: 048
     Dates: start: 20110301, end: 20111001

REACTIONS (11)
  - PAIN [None]
  - RICKETS [None]
  - ARTHRALGIA [None]
  - GASTRIC DISORDER [None]
  - RASH [None]
  - ARTHROPATHY [None]
  - LABYRINTHITIS [None]
  - INTERVERTEBRAL DISC OPERATION [None]
  - SPINAL FUSION SURGERY [None]
  - PHARYNGITIS [None]
  - IMPAIRED WORK ABILITY [None]
